FAERS Safety Report 21103162 (Version 3)
Quarter: 2022Q4

REPORT INFORMATION
  Report Type: Report from Study
  Country: US (occurrence: US)
  Receive Date: 20220720
  Receipt Date: 20221223
  Transmission Date: 20230113
  Serious: No
  Sender: FDA-Public Use
  Company Number: US-NOVARTISTESTPH-NVSC2022US163530

PATIENT
  Age: 56 Year
  Sex: Female

DRUGS (1)
  1. COSENTYX [Suspect]
     Active Substance: SECUKINUMAB
     Indication: Psoriatic arthropathy
     Dosage: 300 MG, OTHER (Q WEEK FOR FOUR WEEKS AND THEN Q FOUR WEEKS)
     Route: 058
     Dates: start: 20220608

REACTIONS (5)
  - Arthralgia [Unknown]
  - Dry skin [Unknown]
  - Pruritus [Unknown]
  - Joint injury [Unknown]
  - Psoriasis [Unknown]

NARRATIVE: CASE EVENT DATE: 20220718
